FAERS Safety Report 12449290 (Version 1)
Quarter: 2016Q2

REPORT INFORMATION
  Report Type: Spontaneous
  Country: US (occurrence: US)
  Receive Date: 20160608
  Receipt Date: 20160608
  Transmission Date: 20160815
  Serious: No
  Sender: FDA-Public Use
  Company Number: US-009507513-1606USA000888

PATIENT
  Sex: Female
  Weight: 40.82 kg

DRUGS (2)
  1. PRINIVIL [Suspect]
     Active Substance: LISINOPRIL
     Dosage: UNK
     Route: 048
     Dates: start: 201601
  2. LORAZEPAM. [Concomitant]
     Active Substance: LORAZEPAM
     Indication: ANXIETY
     Dosage: 1 MG ONCE EVERY 8 HOURS, AS NEEDED
     Dates: start: 201601

REACTIONS (3)
  - Feeling abnormal [Unknown]
  - Pain [Unknown]
  - Dysphonia [Unknown]
